FAERS Safety Report 21260493 (Version 2)
Quarter: 2022Q3

REPORT INFORMATION
  Report Type: Spontaneous
  Country: CN (occurrence: CN)
  Receive Date: 20220826
  Receipt Date: 20220829
  Transmission Date: 20221026
  Serious: Yes (Hospitalization, Other)
  Sender: FDA-Public Use
  Company Number: CN-PFIZER INC-PV202200043818

PATIENT
  Age: 55 Year
  Sex: Male

DRUGS (36)
  1. METHYLPREDNISOLONE [Suspect]
     Active Substance: METHYLPREDNISOLONE
     Indication: Immunosuppression
     Dosage: 5 MG, 1X/DAY
     Dates: start: 20200208, end: 20200212
  2. METHYLPREDNISOLONE [Suspect]
     Active Substance: METHYLPREDNISOLONE
     Indication: Renal transplant
     Dosage: 5 MG, 1X/DAY
     Dates: start: 20200220
  3. METHYLPREDNISOLONE [Suspect]
     Active Substance: METHYLPREDNISOLONE
     Indication: COVID-19
     Dosage: 20 MG, 1X/DAY
     Dates: start: 2020
  4. METHYLPREDNISOLONE [Suspect]
     Active Substance: METHYLPREDNISOLONE
     Indication: Pneumocystis jirovecii pneumonia
  5. MYCOPHENOLATE MOFETIL [Suspect]
     Active Substance: MYCOPHENOLATE MOFETIL
     Indication: Renal transplant
     Dosage: 0.5 G, 2X/DAY
     Dates: start: 20200208, end: 20200225
  6. MYCOPHENOLATE MOFETIL [Suspect]
     Active Substance: MYCOPHENOLATE MOFETIL
     Indication: Immunosuppression
     Dosage: 0.25 G, 2X/DAY
     Dates: start: 20200226, end: 20200227
  7. MYCOPHENOLATE MOFETIL [Suspect]
     Active Substance: MYCOPHENOLATE MOFETIL
     Indication: Pneumocystis jirovecii pneumonia
     Dosage: 0.25 G, 2X/DAY
     Dates: start: 20200305
  8. MYCOPHENOLATE MOFETIL [Suspect]
     Active Substance: MYCOPHENOLATE MOFETIL
     Indication: COVID-19
  9. TACROLIMUS [Suspect]
     Active Substance: TACROLIMUS
     Indication: Renal transplant
     Dosage: 2.5 MG, 2X/DAY
     Dates: start: 20200208, end: 20200212
  10. TACROLIMUS [Suspect]
     Active Substance: TACROLIMUS
     Indication: Immunosuppression
     Dosage: 2.5 MG, 2X/DAY
     Dates: start: 20200222, end: 20200228
  11. TACROLIMUS [Suspect]
     Active Substance: TACROLIMUS
     Indication: COVID-19
     Dosage: 1.5 MG, 2X/DAY
     Dates: start: 20200229, end: 20200304
  12. TACROLIMUS [Suspect]
     Active Substance: TACROLIMUS
     Indication: Pneumocystis jirovecii pneumonia
     Dosage: 2 MG, 2X/DAY; THE CONCENTRATION WAS MAINTAINED AT 4-5 NG/ML
     Dates: start: 20200305
  13. TACROLIMUS [Suspect]
     Active Substance: TACROLIMUS
     Dosage: 1 MG, 2X/DAY; THE DRUG CONCENTRATION WAS MAINTAINED AT 2-3 NG/ML
  14. LOPINAVIR [Suspect]
     Active Substance: LOPINAVIR
     Indication: Antiviral treatment
     Dosage: UNK
     Route: 048
     Dates: start: 20200220, end: 20200228
  15. LOPINAVIR [Suspect]
     Active Substance: LOPINAVIR
     Indication: COVID-19
  16. LOPINAVIR [Suspect]
     Active Substance: LOPINAVIR
     Indication: Pneumocystis jirovecii pneumonia
  17. RITONAVIR [Suspect]
     Active Substance: RITONAVIR
     Indication: Antiviral treatment
     Dosage: UNK
     Route: 048
     Dates: start: 20200220, end: 20200228
  18. RITONAVIR [Suspect]
     Active Substance: RITONAVIR
     Indication: COVID-19
  19. RITONAVIR [Suspect]
     Active Substance: RITONAVIR
     Indication: Pneumocystis jirovecii pneumonia
  20. UMIFENOVIR [Suspect]
     Active Substance: UMIFENOVIR
     Indication: Pneumocystis jirovecii pneumonia
     Dosage: 0.2 G, 3X/DAY
     Dates: start: 20200229, end: 20200306
  21. UMIFENOVIR [Suspect]
     Active Substance: UMIFENOVIR
     Indication: COVID-19
  22. UMIFENOVIR [Suspect]
     Active Substance: UMIFENOVIR
     Indication: Antiviral treatment
  23. FEBUXOSTAT [Suspect]
     Active Substance: FEBUXOSTAT
     Indication: COVID-19
     Dosage: UNK
     Dates: start: 20200220
  24. FEBUXOSTAT [Suspect]
     Active Substance: FEBUXOSTAT
     Indication: Pneumocystis jirovecii pneumonia
  25. FUROSEMIDE [Suspect]
     Active Substance: FUROSEMIDE
     Indication: Pneumocystis jirovecii pneumonia
     Dosage: UNK
     Dates: start: 20200208
  26. FUROSEMIDE [Suspect]
     Active Substance: FUROSEMIDE
     Indication: COVID-19
  27. PHOSPHOCREATINE [Suspect]
     Active Substance: PHOSPHOCREATINE
     Indication: Pneumocystis jirovecii pneumonia
     Dosage: UNK
     Dates: start: 20200221, end: 20200224
  28. PHOSPHOCREATINE [Suspect]
     Active Substance: PHOSPHOCREATINE
     Indication: COVID-19
  29. THYMALFASIN [Suspect]
     Active Substance: THYMALFASIN
     Indication: Pneumocystis jirovecii pneumonia
     Dosage: UNK 2 TIMES A WEEK
     Dates: start: 20200223, end: 20200303
  30. THYMALFASIN [Suspect]
     Active Substance: THYMALFASIN
     Indication: COVID-19
  31. PRIVIGEN [Suspect]
     Active Substance: HUMAN IMMUNOGLOBULIN G
     Indication: COVID-19
     Dosage: UNK
     Dates: start: 20200218, end: 20200220
  32. PRIVIGEN [Suspect]
     Active Substance: HUMAN IMMUNOGLOBULIN G
     Indication: Pneumocystis jirovecii pneumonia
     Dosage: UNK
     Dates: start: 20200224, end: 20200307
  33. CEFDINIR [Suspect]
     Active Substance: CEFDINIR
     Indication: Pneumocystis jirovecii pneumonia
     Dosage: UNK
     Dates: start: 20200305
  34. CEFDINIR [Suspect]
     Active Substance: CEFDINIR
     Indication: COVID-19
  35. MICAFUNGIN [Suspect]
     Active Substance: MICAFUNGIN
     Indication: Pneumocystis jirovecii pneumonia
     Dosage: 50 MG, GTT 1X/DAY
     Route: 042
     Dates: start: 20200228, end: 20200304
  36. MICAFUNGIN [Suspect]
     Active Substance: MICAFUNGIN
     Indication: COVID-19

REACTIONS (2)
  - Pneumocystis jirovecii pneumonia [Unknown]
  - COVID-19 [Unknown]
